FAERS Safety Report 21911191 (Version 1)
Quarter: 2023Q1

REPORT INFORMATION
  Report Type: Other
  Country: US (occurrence: None)
  Receive Date: 20230125
  Receipt Date: 20230125
  Transmission Date: 20230417
  Serious: Yes (Other)
  Sender: FDA-Public Use
  Company Number: US-ROCHE-3268110

PATIENT
  Age: 46 Year
  Sex: Male
  Weight: 74.8 kg

DRUGS (5)
  1. OCREVUS [Suspect]
     Active Substance: OCRELIZUMAB
     Indication: Relapsing-remitting multiple sclerosis
     Dosage: THAN 600 MG EVERY 6 MONTHS?STARTED ON OCREVUS IN JULY - FIRST TWO DOSES, NEXT SCHEDULED ON 23/JAN/20
     Route: 042
     Dates: start: 202207
  2. GABAPENTIN [Concomitant]
     Active Substance: GABAPENTIN
  3. BACLOFEN [Concomitant]
     Active Substance: BACLOFEN
  4. LACTULOSE [Concomitant]
     Active Substance: LACTULOSE
  5. NAPROXEN [Concomitant]
     Active Substance: NAPROXEN

REACTIONS (10)
  - Urinary retention [Unknown]
  - Peripheral paralysis [Unknown]
  - JC polyomavirus test positive [Unknown]
  - Muscular weakness [Unknown]
  - Paraesthesia [Unknown]
  - Asthenia [Unknown]
  - Balance disorder [Unknown]
  - Gait inability [Unknown]
  - Haematocrit increased [Not Recovered/Not Resolved]
  - Anion gap decreased [Unknown]
